FAERS Safety Report 15767954 (Version 1)
Quarter: 2018Q4

REPORT INFORMATION
  Report Type: Spontaneous
  Country: FR (occurrence: FR)
  Receive Date: 20181227
  Receipt Date: 20181227
  Transmission Date: 20190205
  Serious: Yes (Other)
  Sender: FDA-Public Use
  Company Number: FR-FRESENIUS KABI-FK201813228

PATIENT
  Age: 22 Year
  Sex: Male
  Weight: 50 kg

DRUGS (3)
  1. DEFERIPRONE [Suspect]
     Active Substance: DEFERIPRONE
     Indication: CONGENITAL APLASTIC ANAEMIA
     Dosage: UNKNOWN
     Route: 065
  2. DEFEROXAMINE MESYLATE (MANUFACTURER UNKNOWN) [Suspect]
     Active Substance: DEFEROXAMINE MESYLATE
     Indication: CONGENITAL APLASTIC ANAEMIA
     Dosage: UNKNOWN
     Route: 065
  3. DEFERASIROX. [Suspect]
     Active Substance: DEFERASIROX
     Indication: CONGENITAL APLASTIC ANAEMIA
     Dosage: UNKNOWN
     Route: 065

REACTIONS (3)
  - Hypophosphataemic osteomalacia [Recovered/Resolved]
  - Nephrolithiasis [Recovered/Resolved]
  - Hypercalciuria [Recovered/Resolved]
